FAERS Safety Report 13339867 (Version 1)
Quarter: 2017Q1

REPORT INFORMATION
  Report Type: Report from Study
  Country: BR (occurrence: BR)
  Receive Date: 20170315
  Receipt Date: 20170315
  Transmission Date: 20170428
  Serious: Yes (Other)
  Sender: FDA-Public Use
  Company Number: PHHY2017BR035647

PATIENT
  Sex: Male
  Weight: 78 kg

DRUGS (6)
  1. GLIFAGE [Concomitant]
     Active Substance: METFORMIN HYDROCHLORIDE
     Indication: DIABETES MELLITUS
     Dosage: 800 MG, QD
     Route: 065
  2. HUMAN INSULIN [Concomitant]
     Active Substance: INSULIN HUMAN
     Indication: DIABETES MELLITUS
     Dosage: 1 DF (1 IN THE MORNING AND 1 IN THE AFTERNOON), BID
     Route: 065
  3. GALVUS MET [Suspect]
     Active Substance: METFORMIN HYDROCHLORIDE\VILDAGLIPTIN
     Dosage: 1 DF (METFORMIN 850 MG / VILDAGLIPTIN 50 MG 1 PER DAY), QD
     Route: 048
  4. RITMONORM [Concomitant]
     Active Substance: PROPAFENONE HYDROCHLORIDE
     Indication: DIABETES MELLITUS
     Dosage: UNK
     Route: 065
  5. GALVUS MET [Suspect]
     Active Substance: METFORMIN HYDROCHLORIDE\VILDAGLIPTIN
     Indication: DIABETES MELLITUS
     Dosage: 1 DF (METFORMIN 850 MG/VILDAGLIPTIN 50 MG), BID (1 IN THE MORNING AND 1 IN THE AFTERNOON)
     Route: 048
  6. METFORMIN [Suspect]
     Active Substance: METFORMIN HYDROCHLORIDE
     Indication: DIABETES MELLITUS
     Dosage: 850 MG, QD
     Route: 048

REACTIONS (3)
  - Diabetes mellitus inadequate control [Unknown]
  - Malaise [Recovering/Resolving]
  - Syncope [Recovering/Resolving]
